FAERS Safety Report 9016879 (Version 1)
Quarter: 2013Q1

REPORT INFORMATION
  Report Type: Spontaneous
  Country: US (occurrence: None)
  Receive Date: 20130116
  Receipt Date: 20130116
  Transmission Date: 20140127
  Serious: No
  Sender: FDA-Public Use
  Company Number: US-HORIZON-DUE-0006-2012

PATIENT
  Sex: Female

DRUGS (1)
  1. DUEXIS [Suspect]
     Indication: INFLAMMATION
     Dosage: 1 DF ONCE A DAY
     Dates: start: 20120501, end: 20120503

REACTIONS (2)
  - Palpitations [None]
  - Dyspnoea [None]
